FAERS Safety Report 6262500-1 (Version None)
Quarter: 2009Q3

REPORT INFORMATION
  Report Type: 
  Country: None (occurrence: None)
  Receive Date: 20090709
  Receipt Date: 20090630
  Transmission Date: 20100115
  Serious: Yes (Hospitalization)
  Sender: FDA-Public Use
  Company Number: PHHO2006US10123

PATIENT
  Sex: Male
  Weight: 68.2 kg

DRUGS (5)
  1. STI571/CGP57148B T35717+CAPS [Suspect]
     Indication: CHRONIC MYELOID LEUKAEMIA
     Dosage: 400 MG/DAY
     Route: 048
     Dates: start: 20000907, end: 20060618
  2. STI571/CGP57148B T35717+CAPS [Suspect]
     Dosage: UNK, NO TREATMENT
     Dates: start: 20060618, end: 20060619
  3. STI571/CGP57148B T35717+CAPS [Suspect]
     Dosage: 400 MG/DAY
     Route: 048
     Dates: start: 20060620, end: 20060726
  4. STI571/CGP57148B T35717+CAPS [Suspect]
     Dosage: UNK, NO TREATMENT
     Dates: start: 20060727, end: 20060729
  5. STI571/CGP57148B T35717+CAPS [Suspect]
     Dosage: 400 MG, QD
     Route: 048
     Dates: start: 20060730

REACTIONS (6)
  - ABDOMINAL PAIN [None]
  - APPENDICECTOMY [None]
  - APPENDICITIS [None]
  - COLON CANCER [None]
  - ILEOCOLECTOMY [None]
  - MALIGNANT NEOPLASM PROGRESSION [None]
